FAERS Safety Report 6480695-1 (Version None)
Quarter: 2009Q4

REPORT INFORMATION
  Report Type: 
  Country: None (occurrence: None)
  Receive Date: 20091202
  Receipt Date: 20091031
  Transmission Date: 20100525
  Serious: Yes (Hospitalization)
  Sender: FDA-Public Use
  Company Number: 2009SP002920

PATIENT
  Age: 62 Year
  Sex: Female
  Weight: 72.6 kg

DRUGS (18)
  1. XOPENEX [Suspect]
     Indication: CHRONIC OBSTRUCTIVE PULMONARY DISEASE
     Dosage: 1.25 MG/3ML; QID; INHALATION; 1.25 MG/3ML; QD; INHALATION
     Route: 055
     Dates: start: 20040601, end: 20090101
  2. XOPENEX [Suspect]
     Indication: CHRONIC OBSTRUCTIVE PULMONARY DISEASE
     Dosage: 1.25 MG/3ML; QID; INHALATION; 1.25 MG/3ML; QD; INHALATION
     Route: 055
     Dates: start: 20090301, end: 20090301
  3. VIAGRA [Concomitant]
  4. TRACLEER [Concomitant]
  5. LASIX [Concomitant]
  6. ALDACTONE [Concomitant]
  7. ACETAZOLAMIDE [Concomitant]
  8. POTASSIUM [Concomitant]
  9. COUMADIN [Concomitant]
  10. LANOXIN [Concomitant]
  11. OXYGEN [Concomitant]
  12. ALBUTEROL [Concomitant]
  13. LEVOTHYROXINE SODIUM [Concomitant]
  14. FLONASE [Concomitant]
  15. NEXIUM [Concomitant]
  16. IPRATROPIUM [Concomitant]
  17. ADVAIR DISKUS 100/50 [Concomitant]
  18. PREV MEDS [Concomitant]

REACTIONS (3)
  - ATRIAL FLUTTER [None]
  - CATHETER SITE HAEMORRHAGE [None]
  - ECONOMIC PROBLEM [None]
